FAERS Safety Report 4651558-9 (Version None)
Quarter: 2005Q2

REPORT INFORMATION
  Report Type: 
  Country: None (occurrence: None)
  Receive Date: 20050503
  Receipt Date: 20050330
  Transmission Date: 20051028
  Serious: Yes (Death)
  Sender: FDA-Public Use
  Company Number: GB-MERCK-0504GBR00017

PATIENT
  Age: 15 Year
  Sex: Female
  Weight: 58 kg

DRUGS (4)
  1. CANCIDAS [Suspect]
     Indication: SYSTEMIC CANDIDA
     Route: 042
     Dates: start: 20030106, end: 20030106
  2. CANCIDAS [Suspect]
     Route: 042
     Dates: start: 20030107, end: 20030113
  3. AMPHOTERICIN B [Concomitant]
     Indication: NEUTROPENIC SEPSIS
     Route: 065
     Dates: start: 20021230, end: 20030113
  4. ANTIMICROBIAL (UNSPECIFIED) [Concomitant]
     Route: 065

REACTIONS (2)
  - DRUG INEFFECTIVE [None]
  - PULMONARY HAEMORRHAGE [None]
